FAERS Safety Report 19982383 (Version 4)
Quarter: 2022Q4

REPORT INFORMATION
  Report Type: Spontaneous
  Country: US (occurrence: US)
  Receive Date: 20211022
  Receipt Date: 20221124
  Transmission Date: 20230113
  Serious: Yes (Other)
  Sender: FDA-Public Use
  Company Number: US-JNJFOC-20211024255

PATIENT
  Age: 2 Decade
  Sex: Female

DRUGS (13)
  1. ELMIRON [Suspect]
     Active Substance: PENTOSAN POLYSULFATE SODIUM
     Indication: Cystitis interstitial
     Route: 048
     Dates: start: 1996, end: 2014
  2. ELMIRON [Suspect]
     Active Substance: PENTOSAN POLYSULFATE SODIUM
     Dosage: DAILY
     Route: 048
  3. OMEGA-3 IQ [Concomitant]
     Indication: Macular degeneration
     Dates: start: 2011
  4. MINERALS\VITAMINS [Concomitant]
     Active Substance: MINERALS\VITAMINS
     Indication: Macular degeneration
     Dates: start: 2011
  5. PROBIOTIC ACIDOPHILUS [LACTOBACILLUS ACIDOPHILUS] [Concomitant]
     Indication: Infection prophylaxis
     Dates: start: 2000
  6. NITROFURANTOIN [Concomitant]
     Active Substance: NITROFURANTOIN
     Indication: Infection prophylaxis
     Dates: start: 2000
  7. FAMOTIDINE [Concomitant]
     Active Substance: FAMOTIDINE
     Indication: Gastrooesophageal reflux disease
     Dates: start: 2010
  8. MYRBETRIQ [Concomitant]
     Active Substance: MIRABEGRON
     Indication: Hypertonic bladder
     Dates: start: 2012
  9. SYMBICORT [Concomitant]
     Active Substance: BUDESONIDE\FORMOTEROL FUMARATE DIHYDRATE
     Indication: Asthma
     Route: 055
     Dates: start: 2010
  10. ATORVASTATIN [Concomitant]
     Active Substance: ATORVASTATIN
     Indication: Blood cholesterol increased
     Dates: start: 2011
  11. ALBUTEROL [Concomitant]
     Active Substance: ALBUTEROL
     Indication: Asthma
     Dates: start: 2010
  12. ALENDRONATE [Concomitant]
     Active Substance: ALENDRONATE SODIUM
     Indication: Osteoporosis
     Dates: start: 2012
  13. ESTRADIOL [Concomitant]
     Active Substance: ESTRADIOL
     Indication: Menopause
     Dates: start: 2000

REACTIONS (3)
  - Dry age-related macular degeneration [Not Recovered/Not Resolved]
  - Retinal pigmentation [Unknown]
  - Off label use [Unknown]

NARRATIVE: CASE EVENT DATE: 20100101
